FAERS Safety Report 6544146-0 (Version None)
Quarter: 2010Q1

REPORT INFORMATION
  Report Type: 
  Country: None (occurrence: None)
  Receive Date: 20100120
  Receipt Date: 20090319
  Transmission Date: 20100710
  Serious: No
  Sender: FDA-Public Use
  Company Number: US-ALLERGAN-0903752US

PATIENT
  Sex: Male

DRUGS (1)
  1. PRED FORTE [Suspect]
     Indication: DRUG USE FOR UNKNOWN INDICATION
     Dosage: UNK, UNKNOWN
     Route: 047
     Dates: start: 20090308

REACTIONS (2)
  - DIZZINESS [None]
  - VISION BLURRED [None]
